FAERS Safety Report 8532764 (Version 4)
Quarter: 2013Q4

REPORT INFORMATION
  Report Type: Spontaneous
  Country: CA (occurrence: CA)
  Receive Date: 20120426
  Receipt Date: 20131205
  Transmission Date: 20140711
  Serious: Yes (Other)
  Sender: FDA-Public Use
  Company Number: CA-ROCHE-1062573

PATIENT
  Sex: Male
  Weight: 81.72 kg

DRUGS (1)
  1. ACCUTANE [Suspect]
     Indication: ACNE
     Route: 048
     Dates: start: 2012, end: 2012

REACTIONS (12)
  - Depression [Recovered/Resolved]
  - Erectile dysfunction [Recovered/Resolved]
  - Decreased appetite [Recovering/Resolving]
  - Suicidal ideation [Recovered/Resolved]
  - Mood altered [Recovering/Resolving]
  - Disturbance in sexual arousal [Recovered/Resolved]
  - Disturbance in attention [Recovering/Resolving]
  - Insomnia [Not Recovered/Not Resolved]
  - Crying [Recovered/Resolved]
  - Panic attack [Recovered/Resolved]
  - Weight decreased [Recovered/Resolved]
  - Social avoidant behaviour [Recovered/Resolved]
